FAERS Safety Report 5700034-0 (Version None)
Quarter: 2008Q2

REPORT INFORMATION
  Report Type: 
  Country: None (occurrence: None)
  Receive Date: 20080410
  Receipt Date: 20080331
  Transmission Date: 20081010
  Serious: Yes (Hospitalization)
  Sender: FDA-Public Use
  Company Number: MX-ROCHE-556826

PATIENT
  Age: 41 Year
  Sex: Male
  Weight: 53 kg

DRUGS (5)
  1. INVIRASE [Suspect]
     Dosage: DOSAGE REGIMEN REPORTED AS 4 QD.
     Route: 048
     Dates: start: 20080219
  2. RITONAVIR [Concomitant]
     Dosage: DOSAGE REGIMEN: 2 QD.
     Route: 048
     Dates: start: 20080219
  3. LAMIVUDINE + ZIDOVUDINE [Concomitant]
     Dosage: DOSE: 2 QD. STRENGTH: LAMIVUDINE/ZIDOVUDINE: 150+250MG =400 MG
     Route: 048
     Dates: start: 20080219
  4. LAMIVUDINE + ZIDOVUDINE [Concomitant]
     Dosage: DOSE: 2 QD. STRENGTH: LAMIVUDINE/ZIDOVUDINE: 150+250MG =400 MG
     Route: 048
     Dates: start: 20080219
  5. RANITIDINE [Concomitant]
     Dosage: DOSAGE REGIMEN: 2 QD.
     Route: 048
     Dates: start: 20080224, end: 20080227

REACTIONS (1)
  - COLITIS ULCERATIVE [None]
